FAERS Safety Report 5620072-6 (Version None)
Quarter: 2008Q1

REPORT INFORMATION
  Report Type: 
  Country: None (occurrence: None)
  Receive Date: 20080208
  Receipt Date: 20080204
  Transmission Date: 20080703
  Serious: Yes (Death, Hospitalization)
  Sender: FDA-Public Use
  Company Number: GB-ASTRAZENECA-2008GB00141

PATIENT
  Age: 30 Year
  Sex: Female

DRUGS (3)
  1. BUPIVACAINE [Suspect]
     Indication: EPIDURAL ANAESTHESIA
     Route: 042
     Dates: start: 20040511
  2. GELOFUSIN [Concomitant]
     Dates: start: 20040511
  3. SYNTOCINON [Concomitant]
     Indication: HAEMORRHAGE
     Route: 042

REACTIONS (4)
  - DRUG ADMINISTRATION ERROR [None]
  - DRUG TOXICITY [None]
  - GRAND MAL CONVULSION [None]
  - VENTRICULAR FIBRILLATION [None]
